FAERS Safety Report 12393799 (Version 1)
Quarter: 2016Q2

REPORT INFORMATION
  Report Type: Spontaneous
  Country: US (occurrence: US)
  Receive Date: 20160523
  Receipt Date: 20160523
  Transmission Date: 20160815
  Serious: No
  Sender: FDA-Public Use
  Company Number: US-BAYER-2016-097888

PATIENT
  Age: 84 Year
  Sex: Female
  Weight: 47.17 kg

DRUGS (1)
  1. ALEVE [Suspect]
     Active Substance: NAPROXEN SODIUM
     Indication: SPINAL PAIN
     Dosage: UNK UNK, BID
     Route: 048
     Dates: start: 201605

REACTIONS (4)
  - Drug ineffective [None]
  - Product use issue [None]
  - Wrong technique in product usage process [None]
  - Abdominal pain upper [Not Recovered/Not Resolved]

NARRATIVE: CASE EVENT DATE: 201605
